FAERS Safety Report 8707458 (Version 2)
Quarter: 2013Q4

REPORT INFORMATION
  Report Type: Spontaneous
  Country: US (occurrence: US)
  Receive Date: 20120804
  Receipt Date: 20131101
  Transmission Date: 20140711
  Serious: No
  Sender: FDA-Public Use
  Company Number: US-009507513-1207USA003040

PATIENT
  Age: 61 Year
  Sex: Female

DRUGS (4)
  1. VICTRELIS [Suspect]
     Indication: CHRONIC HEPATITIS C
     Dosage: 800 MG, TID
     Route: 048
     Dates: start: 20120624, end: 20120701
  2. REBETOL [Suspect]
     Dosage: 600 MG, QAM
     Dates: start: 20120320, end: 20120701
  3. REBETOL [Suspect]
     Dosage: 400 MG, QPM
     Dates: start: 20120320, end: 20120701
  4. PEGASYS [Suspect]
     Dosage: 180 MICROGRAM, UNK
     Route: 058
     Dates: start: 20120320, end: 20120701

REACTIONS (5)
  - Headache [Unknown]
  - Nausea [Unknown]
  - Diarrhoea [Unknown]
  - Vomiting [Unknown]
  - Alopecia [Unknown]
